FAERS Safety Report 7267828-4 (Version None)
Quarter: 2011Q1

REPORT INFORMATION
  Report Type: 
  Country: None (occurrence: None)
  Receive Date: 20110201
  Receipt Date: 20110125
  Transmission Date: 20110831
  Serious: Yes (Life-Threatening, Hospitalization, Disabling)
  Sender: FDA-Public Use
  Company Number: B0695826A

PATIENT
  Sex: Male
  Weight: 90 kg

DRUGS (1)
  1. AMPICILLIN SODIUM/SULBACTAM SODIUM [Suspect]
     Indication: PLEURISY
     Route: 048
     Dates: start: 20101104, end: 20101110

REACTIONS (2)
  - CHOLECYSTITIS [None]
  - JAUNDICE [None]
